FAERS Safety Report 7568537 (Version 2)
Quarter: 2012Q4

REPORT INFORMATION
  Report Type: 
  Country: FR (occurrence: FR)
  Receive Date: 20100831
  Receipt Date: 20121004
  Transmission Date: 20130627
  Serious: Yes (Death, Other)
  Sender: FDA-Public Use
  Company Number: FR-ELI_LILLY_AND_COMPANY-FR201008007176

PATIENT
  Sex: Female

DRUGS (4)
  1. GEMCITABINE HYDROCHLORIDE [Suspect]
     Indication: LEIOMYOSARCOMA
     Dosage: 900 mg/m2, D1 and D8 every 21 days
     Route: 042
  2. DOCETAXEL [Concomitant]
     Indication: LEIOMYOSARCOMA
     Dosage: 100 mg/m2, D8 every 21 days
     Route: 042
  3. LENOGRASTIM [Concomitant]
     Dosage: UNK, D9 - D15 every 21 days
  4. DEXAMETHASONE [Concomitant]
     Dosage: UNK
     Route: 048

REACTIONS (2)
  - Haemorrhage [Fatal]
  - Thrombocytopenia [Unknown]
